FAERS Safety Report 4344296-3 (Version None)
Quarter: 2004Q2

REPORT INFORMATION
  Report Type: 
  Country: None (occurrence: None)
  Receive Date: 20040419
  Receipt Date: 20040402
  Transmission Date: 20050107
  Serious: Yes (Hospitalization)
  Sender: FDA-Public Use
  Company Number: A01200401622

PATIENT
  Sex: Male

DRUGS (3)
  1. ELOXATIN [Suspect]
  2. LEUCOVORIN CALCIUM [Concomitant]
  3. 5-FLUOROURACIL (FLUOROURACIL) [Concomitant]

REACTIONS (3)
  - AGGRESSION [None]
  - INFUSION RELATED REACTION [None]
  - STUPOR [None]
